FAERS Safety Report 18955619 (Version 2)
Quarter: 2021Q1

REPORT INFORMATION
  Report Type: Report from Study
  Country: US (occurrence: US)
  Receive Date: 20210301
  Receipt Date: 20210317
  Transmission Date: 20210420
  Serious: Yes (Hospitalization, Other)
  Sender: FDA-Public Use
  Company Number: US-PFIZER INC-2021174975

PATIENT
  Age: 45 Year
  Sex: Male

DRUGS (20)
  1. ALBUTEROL [SALBUTAMOL] [Concomitant]
     Active Substance: ALBUTEROL
     Dosage: 1?2 PUFFS, AS NEEDED (1 IN 6HR)
  2. GABAPENTIN. [Concomitant]
     Active Substance: GABAPENTIN
     Indication: PAIN
     Dosage: PHARMACY COMPOUNDING ACCESS, MISCELLANEOUS: IF NEEDED (0.5ML 1 IN 8HR)
  3. FAMOTIDINE. [Concomitant]
     Active Substance: FAMOTIDINE
     Dosage: FOR 7 DAYS (20 MG,1 IN 0.5D)
     Route: 048
  4. OLANZAPINE. [Concomitant]
     Active Substance: OLANZAPINE
     Dosage: TAKE ON DAYS 2?4 OF EACH CYCLE AT BED TIME (5 MG, 1 IN 1 D)
     Route: 048
  5. TETRACAINE. [Concomitant]
     Active Substance: TETRACAINE
     Indication: PAIN
     Dosage: PHARMACY COMPOUNDING ACCESS, MISCELLANEOUS: IF NEEDED (0.5 ML 1 IN 8HR)
  6. TAS 102 [Suspect]
     Active Substance: TIPIRACIL HYDROCHLORIDE\TRIFLURIDINE
     Indication: ADENOCARCINOMA GASTRIC
     Dosage: CYCLE 1 (45 MG, 1 IN 0.5 D)
     Route: 048
     Dates: start: 20201203
  7. ATROPINE SULFATE\DIPHENOXYLATE [Concomitant]
     Active Substance: ATROPINE SULFATE\DIPHENOXYLATE
     Indication: DIARRHOEA
     Dosage: [DIPHENOXYLATE 2.5 MG]/[ATROPINE SULFATE 0.25 MG], TAKE 1?2 TAB PRN, MAX 8 TABLETS PER DAY (1 IN 6 H
     Route: 048
  8. GABAPENTIN. [Concomitant]
     Active Substance: GABAPENTIN
     Dosage: 900MG  (300MG, 1 IN 8 HR)
     Route: 048
  9. MORPHINE [MORPHINE SULFATE] [Concomitant]
     Dosage: 30 MG (15 MG, 1 IN 12 HR)
     Route: 048
  10. HYCET [Concomitant]
     Active Substance: ACETAMINOPHEN\HYDROCODONE BITARTRATE
     Indication: PAIN
     Dosage: 7.5?325MG/15ML SOLUTION, TAKE 20?30ML (1 IN 4 HR)
     Route: 048
  11. LORAZEPAM. [Concomitant]
     Active Substance: LORAZEPAM
     Dosage: AS NEEDED (1MG, 1 IN 4HR)
     Route: 048
  12. PEGFILGRASTIM CBQV [Concomitant]
     Dosage: 24 TO 48 HOURS AFTER FINISHING ORAL CHEMO (IE ON DAY 6 OR DAY 7 OF EACH CYCLE) ON EACH 14 DAY CHEMOT
     Route: 058
  13. DEXAMETHASONE. [Concomitant]
     Active Substance: DEXAMETHASONE
     Dosage: FOR 4 DAYS WITH EACH CYCLE OF CHEMOTHERAPY (1 IN 0.5 D)
  14. OMEPRAZOLE. [Concomitant]
     Active Substance: OMEPRAZOLE
     Dosage: 20 MG (10 MG, 1 IN 0.5 D)
     Route: 048
  15. XARELTO [Concomitant]
     Active Substance: RIVAROXABAN
     Dosage: 20 MG (20MG, 1 IN 1D)
     Route: 048
  16. ONDANSETRON [Concomitant]
     Active Substance: ONDANSETRON
     Dosage: AS NEEDED (8 MG, 1 IN 8HR)
     Route: 048
  17. AMITRIPTYLINE [Concomitant]
     Active Substance: AMITRIPTYLINE
     Indication: PAIN
     Dosage: PHARMACY COMPOUNDING ACCESS, MISCELLANEOUS: IF NEEDED (0.5 ML 1 IN 8HR)
  18. PANTOPRAZOLE [Concomitant]
     Active Substance: PANTOPRAZOLE
     Dosage: DELAYED RELEASE GRANULES 1 PACKET EVERY MORNING BEFORE A MEAL (1 IN 1 D)
     Route: 048
  19. CAMPTOSAR [Suspect]
     Active Substance: IRINOTECAN HYDROCHLORIDE
     Indication: ADENOCARCINOMA GASTRIC
     Dosage: CYCLE 1 (329 MG, 1 IN 2 WK)
     Route: 042
     Dates: start: 20201203
  20. DOCUSATE [Concomitant]
     Active Substance: DOCUSATE
     Dosage: 200 MG (100 MG, 1 IN 0.5 D)
     Route: 048

REACTIONS (1)
  - Dysphagia [Not Recovered/Not Resolved]

NARRATIVE: CASE EVENT DATE: 20210120
